FAERS Safety Report 5258991-5 (Version None)
Quarter: 2007Q1

REPORT INFORMATION
  Report Type: 
  Country: None (occurrence: None)
  Receive Date: 20061217
  Receipt Date: 20051205
  Transmission Date: 20070707
  Serious: Yes (Other)
  Sender: FDA-Public Use
  Company Number: US-JNJFOC-20051102909

PATIENT
  Age: 27 Year
  Sex: Female

DRUGS (4)
  1. LEVAQUIN [Suspect]
     Indication: CHRONIC SINUSITIS
     Dosage: 500 MG, 1 IN 1 DAY
     Dates: start: 20050921, end: 20051001
  2. ADVAIR (SERETIDE MITE) [Concomitant]
  3. CLARITIN [Concomitant]
  4. PREDNISONE TAB [Concomitant]

REACTIONS (2)
  - ANGIOEDEMA [None]
  - URTICARIA [None]
